FAERS Safety Report 5561169-9 (Version None)
Quarter: 2007Q4

REPORT INFORMATION
  Report Type: 
  Country: None (occurrence: None)
  Receive Date: 20071215
  Receipt Date: 20071030
  Transmission Date: 20080405
  Serious: No
  Sender: FDA-Public Use
  Company Number: US-AMGEN-KDL246849

PATIENT
  Sex: Female
  Weight: 68.1 kg

DRUGS (3)
  1. ENBREL [Suspect]
     Indication: RHEUMATOID ARTHRITIS
     Route: 058
     Dates: start: 20070501, end: 20071005
  2. VICODIN [Concomitant]
  3. METHOTREXATE [Concomitant]

REACTIONS (6)
  - PHARYNGOLARYNGEAL PAIN [None]
  - POST PROCEDURAL DRAINAGE [None]
  - PYREXIA [None]
  - SINUSITIS [None]
  - SWELLING FACE [None]
  - TOOTH EXTRACTION [None]
